FAERS Safety Report 18281105 (Version 2)
Quarter: 2020Q4

REPORT INFORMATION
  Report Type: Spontaneous
  Country: CO (occurrence: CO)
  Receive Date: 20200918
  Receipt Date: 20201106
  Transmission Date: 20210113
  Serious: Yes (Hospitalization)
  Sender: FDA-Public Use
  Company Number: CO-ROCHE-2677549

PATIENT
  Age: 7 Year
  Sex: Female
  Weight: 22 kg

DRUGS (2)
  1. HEPARIN [Concomitant]
     Active Substance: HEPARIN SODIUM
  2. PULMOZYME [Suspect]
     Active Substance: DORNASE ALFA
     Indication: CYSTIC FIBROSIS
     Dosage: DOSE 1 AMPOULE, AND FREQUENCY ONE IN 12 HOURS
     Route: 045
     Dates: start: 20200226

REACTIONS (3)
  - Hypercoagulation [Unknown]
  - Ill-defined disorder [Unknown]
  - Hypoxia [Unknown]

NARRATIVE: CASE EVENT DATE: 20200721
